FAERS Safety Report 12905087 (Version 2)
Quarter: 2016Q4

REPORT INFORMATION
  Report Type: Report from Study
  Country: DE (occurrence: DE)
  Receive Date: 20161102
  Receipt Date: 20161109
  Transmission Date: 20170207
  Serious: Yes (Hospitalization)
  Sender: FDA-Public Use
  Company Number: US-ASTRAZENECA-2016SF14333

PATIENT
  Age: 382 Day
  Sex: Male
  Weight: 7.9 kg

DRUGS (10)
  1. SYNAGIS [Suspect]
     Active Substance: PALIVIZUMAB
     Indication: RESPIRATORY SYNCYTIAL VIRUS INFECTION
     Route: 030
     Dates: start: 20120305, end: 20120305
  2. SYNAGIS [Suspect]
     Active Substance: PALIVIZUMAB
     Indication: RESPIRATORY SYNCYTIAL VIRUS INFECTION
     Route: 030
     Dates: start: 20111111, end: 20111111
  3. SYNAGIS [Suspect]
     Active Substance: PALIVIZUMAB
     Indication: RESPIRATORY SYNCYTIAL VIRUS INFECTION
     Route: 030
     Dates: start: 20111208, end: 20111208
  4. SYNAGIS [Suspect]
     Active Substance: PALIVIZUMAB
     Indication: RESPIRATORY SYNCYTIAL VIRUS INFECTION
     Route: 030
     Dates: start: 20120202, end: 20120202
  5. SYNAGIS [Suspect]
     Active Substance: PALIVIZUMAB
     Indication: RESPIRATORY SYNCYTIAL VIRUS INFECTION
     Route: 030
     Dates: start: 20111008, end: 20111008
  6. SYNAGIS [Suspect]
     Active Substance: PALIVIZUMAB
     Indication: RESPIRATORY SYNCYTIAL VIRUS INFECTION
     Route: 030
     Dates: start: 20121205, end: 20121205
  7. CEFUROXIM [Concomitant]
     Active Substance: CEFUROXIME
     Dates: start: 20121119, end: 20121227
  8. SALBUTAMOL [Concomitant]
     Active Substance: ALBUTEROL
  9. SYNAGIS [Suspect]
     Active Substance: PALIVIZUMAB
     Indication: RESPIRATORY SYNCYTIAL VIRUS INFECTION
     Route: 030
     Dates: start: 20120414, end: 20120414
  10. ATROVENT [Concomitant]
     Active Substance: IPRATROPIUM BROMIDE

REACTIONS (3)
  - Acute respiratory failure [Recovered/Resolved with Sequelae]
  - Bronchitis [Recovered/Resolved with Sequelae]
  - Respiratory failure [Recovered/Resolved with Sequelae]

NARRATIVE: CASE EVENT DATE: 20120123
